FAERS Safety Report 20932696 (Version 1)
Quarter: 2022Q2

REPORT INFORMATION
  Report Type: Spontaneous
  Country: US (occurrence: None)
  Receive Date: 20220607
  Receipt Date: 20220607
  Transmission Date: 20220721
  Serious: Yes (Hospitalization)
  Sender: FDA-Public Use
  Company Number: None

PATIENT
  Sex: Male

DRUGS (14)
  1. HUMIRA [Suspect]
     Active Substance: ADALIMUMAB
     Indication: Psoriasis
     Dosage: 40MG/0.4ML? INJECT 1 PEN (40 MG) UNDER THE SKIN (SUBCUTANEOUS INJECTION) EVERY OTHER WEEK
     Route: 058
     Dates: start: 20200220
  2. ALBUTEROL AER HFA [Concomitant]
  3. ATORVASTATIN TAB 20MG [Concomitant]
  4. AZITHROMYCIN [Concomitant]
     Active Substance: AZITHROMYCIN
  5. CYCLOBENZAPR TAB 10MG [Concomitant]
  6. DICLOFENAC TAB 75MG DR [Concomitant]
  7. HUMIRA [Concomitant]
     Active Substance: ADALIMUMAB
  8. HYDROCHLOROT CAP 12.5MG [Concomitant]
  9. LOSARTAN POT TAB 50MG [Concomitant]
  10. METHYLPRED TAB 4MG [Concomitant]
  11. MULTIVITAMIN TAB DAILY [Concomitant]
  12. SF 5000 PLUS CRE 1.1% [Concomitant]
  13. TAMSULOSIN [Suspect]
     Active Substance: TAMSULOSIN
  14. TESTOST CYP [Concomitant]

REACTIONS (2)
  - Therapy interrupted [None]
  - Hospitalisation [None]
